FAERS Safety Report 9307505 (Version 1)
Quarter: 2013Q2

REPORT INFORMATION
  Report Type: Spontaneous
  Country: NL (occurrence: NL)
  Receive Date: 20130524
  Receipt Date: 20130524
  Transmission Date: 20140414
  Serious: Yes (Disabling)
  Sender: FDA-Public Use
  Company Number: NL-BAYER-2013-061740

PATIENT
  Age: 41 Year
  Sex: Female

DRUGS (2)
  1. MIRENA [Suspect]
     Indication: VAGINAL HAEMORRHAGE
     Dosage: 20 MCG/24HR, CONT
     Route: 015
     Dates: start: 20110716
  2. SUMATRIPTAN [Concomitant]
     Dosage: 1 TIMES PER AS NECESSARY 1 DF
     Dates: start: 20070302

REACTIONS (1)
  - Sleep apnoea syndrome [Not Recovered/Not Resolved]
